FAERS Safety Report 5398183-2 (Version None)
Quarter: 2007Q3

REPORT INFORMATION
  Report Type: 
  Country: None (occurrence: None)
  Receive Date: 20070726
  Receipt Date: 20070719
  Transmission Date: 20080115
  Serious: Yes (Hospitalization)
  Sender: FDA-Public Use
  Company Number: DE-ROXANE LABORATORIES, INC-2007-BP-17872RO

PATIENT
  Age: 15 Year
  Sex: Male

DRUGS (3)
  1. DEXAMETHASONE 0.5MG TAB [Suspect]
     Indication: CHEMOTHERAPY
  2. ASPARAGINASE [Suspect]
     Indication: CHEMOTHERAPY
  3. COALL-07/03 PROTOCOL [Concomitant]
     Indication: ACUTE LYMPHOCYTIC LEUKAEMIA

REACTIONS (9)
  - ACTIVATED PARTIAL THROMBOPLASTIN TIME PROLONGED [None]
  - CEREBRAL THROMBOSIS [None]
  - CONVULSION [None]
  - FIBRIN D DIMER INCREASED [None]
  - GLAUCOMA [None]
  - HEADACHE [None]
  - HYPERAMMONAEMIA [None]
  - HYPERTRIGLYCERIDAEMIA [None]
  - VOMITING [None]
